FAERS Safety Report 5520000-8 (Version None)
Quarter: 2007Q4

REPORT INFORMATION
  Report Type: 
  Country: None (occurrence: None)
  Receive Date: 20071116
  Receipt Date: 20071113
  Transmission Date: 20080405
  Serious: Yes (Other)
  Sender: FDA-Public Use
  Company Number: US-ASTRAZENECA-2007UW22513

PATIENT
  Age: 2 Year
  Sex: Male
  Weight: 14.1 kg

DRUGS (2)
  1. PULMICORT RESPULES [Suspect]
     Dosage: 0.5 MG/DL EACH DAY
     Route: 055
  2. SHORT ACTING BETA 2 [Concomitant]

REACTIONS (1)
  - NEUROBLASTOMA [None]
